FAERS Safety Report 4537029-9 (Version None)
Quarter: 2004Q4

REPORT INFORMATION
  Report Type: 
  Country: None (occurrence: None)
  Receive Date: 20041214
  Receipt Date: 20041007
  Transmission Date: 20050328
  Serious: No
  Sender: FDA-Public Use
  Company Number: 2004238195US

PATIENT
  Sex: 0

DRUGS (1)
  1. BEXTRA [Suspect]
     Dosage: 10 MG, UNK, ORAL
     Route: 048

REACTIONS (2)
  - BLOOD TEST ABNORMAL [None]
  - HAEMOGLOBIN DECREASED [None]
